FAERS Safety Report 24238064 (Version 2)
Quarter: 2024Q3

REPORT INFORMATION
  Report Type: Report from Study
  Country: RU (occurrence: None)
  Receive Date: 20240822
  Receipt Date: 20240918
  Transmission Date: 20241016
  Serious: Yes (Other)
  Sender: ASTRAZENECA
  Company Number: 2024A188286

PATIENT
  Age: 4879 Day
  Sex: Female
  Weight: 47 kg

DRUGS (1)
  1. SELUMETINIB [Suspect]
     Active Substance: SELUMETINIB
     Indication: Neoplasm
     Route: 048
     Dates: start: 20231122, end: 20240809

REACTIONS (5)
  - Skin toxicity [Unknown]
  - Rash pustular [Unknown]
  - Pruritus [Unknown]
  - Paronychia [Unknown]
  - Oedema [Unknown]

NARRATIVE: CASE EVENT DATE: 20240809
